FAERS Safety Report 18780456 (Version 4)
Quarter: 2021Q3

REPORT INFORMATION
  Report Type: Spontaneous
  Country: US (occurrence: US)
  Receive Date: 20210125
  Receipt Date: 20210713
  Transmission Date: 20211014
  Serious: Yes (Hospitalization, Other)
  Sender: FDA-Public Use
  Company Number: US-AKCEA THERAPEUTICS-2021IS001056

PATIENT
  Age: 76 Year
  Sex: Male
  Weight: 95.5 kg

DRUGS (5)
  1. TEGSEDI [Suspect]
     Active Substance: INOTERSEN SODIUM
     Indication: HEREDITARY NEUROPATHIC AMYLOIDOSIS
     Route: 058
     Dates: start: 20190730
  2. ISSD (INTEGRATED SYRINGE SAFETY DEVICE) [Suspect]
     Active Substance: DEVICE
  3. TEGSEDI [Suspect]
     Active Substance: INOTERSEN SODIUM
  4. RITUXAN [Concomitant]
     Active Substance: RITUXIMAB
     Route: 065
  5. TEGSEDI [Suspect]
     Active Substance: INOTERSEN SODIUM

REACTIONS (6)
  - Asthenia [Unknown]
  - Yellow skin [Unknown]
  - Anaemia [Unknown]
  - Wheelchair user [Unknown]
  - Hepatic enzyme increased [Unknown]
  - Injection site discolouration [Unknown]
